FAERS Safety Report 19296553 (Version 4)
Quarter: 2021Q2

REPORT INFORMATION
  Report Type: Report from Study
  Country: CA (occurrence: CA)
  Receive Date: 20210524
  Receipt Date: 20210615
  Transmission Date: 20210717
  Serious: Yes (Hospitalization)
  Sender: FDA-Public Use
  Company Number: CA-BIOGEN-2021BI01011808

PATIENT
  Age: 33 Year
  Sex: Female

DRUGS (1)
  1. TECFIDERA [Suspect]
     Active Substance: DIMETHYL FUMARATE
     Indication: RELAPSING-REMITTING MULTIPLE SCLEROSIS
     Dosage: MAINTENANCE DOSE
     Route: 048
     Dates: start: 20190205, end: 202012

REACTIONS (4)
  - Laryngeal stenosis [Unknown]
  - Hepatic enzyme increased [Recovered/Resolved]
  - Decreased immune responsiveness [Unknown]
  - Disseminated varicella zoster virus infection [Recovered/Resolved]

NARRATIVE: CASE EVENT DATE: 202012
